FAERS Safety Report 4376816-7 (Version None)
Quarter: 2004Q2

REPORT INFORMATION
  Report Type: 
  Country: None (occurrence: None)
  Receive Date: 20040608
  Receipt Date: 20040526
  Transmission Date: 20050107
  Serious: Yes (Hospitalization)
  Sender: FDA-Public Use
  Company Number: 2004216043FI

PATIENT
  Age: 75 Year
  Sex: Male

DRUGS (2)
  1. BEXTRA [Suspect]
     Indication: PAIN
     Dosage: 40 MG, QD, ORAL
     Route: 048
     Dates: start: 20040501, end: 20040501
  2. PANACOD [Concomitant]

REACTIONS (3)
  - EYE SWELLING [None]
  - HAEMATOMA [None]
  - URTICARIA [None]
